FAERS Safety Report 5471883-1 (Version None)
Quarter: 2007Q3

REPORT INFORMATION
  Report Type: 
  Country: None (occurrence: None)
  Receive Date: 20070928
  Receipt Date: 20070723
  Transmission Date: 20080115
  Serious: No
  Sender: FDA-Public Use
  Company Number: US-BRISTOL-MYERS SQUIBB COMPANY-13854310

PATIENT
  Sex: Female

DRUGS (1)
  1. DEFINITY [Suspect]

REACTIONS (2)
  - BLOOD PRESSURE DECREASED [None]
  - URTICARIA [None]
